FAERS Safety Report 8119192-6 (Version None)
Quarter: 2012Q1

REPORT INFORMATION
  Report Type: 
  Country: None (occurrence: None)
  Receive Date: 20120207
  Receipt Date: 20120123
  Transmission Date: 20120608
  Serious: Yes (Other)
  Sender: FDA-Public Use
  Company Number: US-WATSON-2012-01587

PATIENT
  Age: 49 Year
  Sex: Male

DRUGS (4)
  1. METHOTREXATE [Suspect]
  2. CYCLOSPORINE [Suspect]
     Indication: IMMUNOSUPPRESSION
     Route: 065
  3. INFLIXIMAB [Suspect]
  4. CYCLOPHOSPHAMIDE [Suspect]

REACTIONS (1)
  - PNEUMONIA LEGIONELLA [None]
